FAERS Safety Report 26128319 (Version 1)
Quarter: 2025Q4

REPORT INFORMATION
  Report Type: Spontaneous
  Country: US (occurrence: US)
  Receive Date: 20251207
  Receipt Date: 20251207
  Transmission Date: 20260117
  Serious: Yes (Other)
  Sender: SANOFI AVENTIS
  Company Number: US-SA-2025SA360294

PATIENT
  Age: 54 Year
  Sex: Female

DRUGS (1)
  1. DUPIXENT [Suspect]
     Active Substance: DUPILUMAB
     Indication: Asthma
     Dosage: 300 MG, QOW
     Route: 058
     Dates: start: 20251126, end: 20251126

REACTIONS (5)
  - Pneumonia [Unknown]
  - Dyspnoea [Unknown]
  - Chest discomfort [Unknown]
  - Anaphylactic reaction [Unknown]
  - Rash [Unknown]

NARRATIVE: CASE EVENT DATE: 20251126
